FAERS Safety Report 9068769 (Version 1)
Quarter: 2013Q1

REPORT INFORMATION
  Report Type: Spontaneous
  Country: US (occurrence: None)
  Receive Date: 20130212
  Receipt Date: 20130212
  Transmission Date: 20140127
  Serious: No
  Sender: FDA-Public Use
  Company Number: None

PATIENT
  Sex: Female

DRUGS (1)
  1. EFFEXOR XR 150MG - GENERIC [Suspect]
     Indication: MYELODYSPLASTIC SYNDROME
     Dosage: ONE BID PO
     Route: 048
     Dates: start: 20090226, end: 20090313

REACTIONS (5)
  - Palpitations [None]
  - Nightmare [None]
  - Insomnia [None]
  - Malaise [None]
  - Product substitution issue [None]
